FAERS Safety Report 8583033-3 (Version None)
Quarter: 2012Q3

REPORT INFORMATION
  Report Type: 
  Country: None (occurrence: None)
  Receive Date: 20120809
  Receipt Date: 20120731
  Transmission Date: 20120928
  Serious: No
  Sender: FDA-Public Use
  Company Number: US-ASTRAZENECA-2012SE54026

PATIENT
  Age: 65 Year
  Sex: Male

DRUGS (2)
  1. LASIX [Concomitant]
  2. BRILINTA [Suspect]
     Route: 048

REACTIONS (1)
  - RESPIRATORY DISORDER [None]
